FAERS Safety Report 4941711-9 (Version None)
Quarter: 2006Q1

REPORT INFORMATION
  Report Type: 
  Country: None (occurrence: None)
  Receive Date: 20060308
  Receipt Date: 20060223
  Transmission Date: 20060701
  Serious: Yes (Death, Other)
  Sender: FDA-Public Use
  Company Number: 2006028434

PATIENT
  Age: 81 Year
  Sex: Male
  Weight: 68 kg

DRUGS (4)
  1. GENOTROPIN [Suspect]
     Indication: HYPOPITUITARISM
     Dosage: 0.6 MG (0.6 MG, DAILY), SUBCUTANEOUS
     Route: 058
     Dates: start: 20010111
  2. LEVOTHYROXINE SODIUM [Concomitant]
  3. HYDROCORITSONE (HYDROCORTISONE) [Concomitant]
  4. ANDROPATCH (TESTOSTERONE) [Concomitant]

REACTIONS (1)
  - PERIPHERAL VASCULAR DISORDER [None]
